FAERS Safety Report 8682975 (Version 2)
Quarter: 2012Q4

REPORT INFORMATION
  Report Type: Report from Study
  Country: BR (occurrence: BR)
  Receive Date: 20120725
  Receipt Date: 20121109
  Transmission Date: 20130627
  Serious: Yes (Death, Hospitalization)
  Sender: FDA-Public Use
  Company Number: BR-ROCHE-1091257

PATIENT
  Sex: Female
  Weight: 49 kg

DRUGS (5)
  1. RITUXIMAB [Suspect]
     Indication: PRODUCT USED FOR UNKNOWN INDICATION
     Route: 042
     Dates: start: 20110510, end: 20110510
  2. LORAZEPAM [Concomitant]
  3. LASIX [Concomitant]
  4. AAS [Concomitant]
  5. CARVEDILOL [Concomitant]

REACTIONS (5)
  - Cardiopulmonary failure [Fatal]
  - Cardiac disorder [Fatal]
  - Cardiac failure [Unknown]
  - Lung disorder [Unknown]
  - Cough [Unknown]
